FAERS Safety Report 19572633 (Version 1)
Quarter: 2021Q3

REPORT INFORMATION
  Report Type: Spontaneous
  Country: NL (occurrence: NL)
  Receive Date: 20210716
  Receipt Date: 20210716
  Transmission Date: 20211014
  Serious: Yes (Hospitalization)
  Sender: FDA-Public Use
  Company Number: NL-BAUSCH-BL-2021-023436

PATIENT
  Age: 63 Year
  Sex: Female

DRUGS (5)
  1. TIMOLOL/DORZOLAMIDE [Suspect]
     Active Substance: DORZOLAMIDE\TIMOLOL
     Indication: INTRAOCULAR PRESSURE INCREASED
     Dosage: 5/20MG/ML. 2 X DAILY 1 IN BOTH EYES
     Route: 047
     Dates: start: 20100825, end: 201101
  2. GLIMEPIRIDE. [Concomitant]
     Active Substance: GLIMEPIRIDE
     Indication: PRODUCT USED FOR UNKNOWN INDICATION
     Dates: start: 2009
  3. LIPITOR [Concomitant]
     Active Substance: ATORVASTATIN CALCIUM
     Indication: PRODUCT USED FOR UNKNOWN INDICATION
     Dates: start: 1999
  4. ENALAPRIL [Concomitant]
     Active Substance: ENALAPRIL
     Indication: PRODUCT USED FOR UNKNOWN INDICATION
     Dates: start: 1999
  5. METFORMINE [Concomitant]
     Active Substance: METFORMIN HYDROCHLORIDE
     Indication: PRODUCT USED FOR UNKNOWN INDICATION
     Dates: start: 2001

REACTIONS (2)
  - Intraocular pressure increased [Recovering/Resolving]
  - Therapeutic response unexpected [Recovering/Resolving]

NARRATIVE: CASE EVENT DATE: 201012
